FAERS Safety Report 7534949-8 (Version None)
Quarter: 2011Q2

REPORT INFORMATION
  Report Type: 
  Country: None (occurrence: None)
  Receive Date: 20110609
  Receipt Date: 20090213
  Transmission Date: 20111010
  Serious: Yes (Hospitalization)
  Sender: FDA-Public Use
  Company Number: PHHY2008US19430

PATIENT
  Sex: Male

DRUGS (12)
  1. LISINOPRIL [Concomitant]
     Dosage: 40 MG, QD
  2. OMEPRAZOLE [Concomitant]
     Dosage: 20 MG, QD
  3. AVELOX [Concomitant]
     Dosage: 400 MG, QD
  4. MOBIC [Concomitant]
     Dosage: 7.5 MG, QD
  5. METOPROLOL [Concomitant]
     Dosage: 50 MG, BID
  6. PLAVIX [Concomitant]
     Dosage: 1 TAB, QD
  7. GLEEVEC [Suspect]
     Dosage: 400 MG, QD
     Route: 048
     Dates: start: 20081112
  8. ASPIRIN [Concomitant]
     Dosage: 325 MG, QD
  9. ISOSORBIDE MONONITRATE [Concomitant]
     Dosage: 120 MG, QD
  10. AMLODIPINE BESYLATE [Concomitant]
     Dosage: 10 MG, QD
  11. GLEEVEC [Suspect]
     Indication: CHRONIC MYELOID LEUKAEMIA
     Dosage: 400 MG, QD
     Route: 065
     Dates: start: 20080508, end: 20080610
  12. GLEEVEC [Suspect]
     Indication: GASTROINTESTINAL STROMAL TUMOUR
     Dosage: 300 MG, QD
     Route: 048
     Dates: start: 20080814

REACTIONS (2)
  - HAEMATOCHEZIA [None]
  - GASTROINTESTINAL HAEMORRHAGE [None]
